FAERS Safety Report 19093415 (Version 1)
Quarter: 2021Q2

REPORT INFORMATION
  Report Type: Spontaneous
  Country: US (occurrence: US)
  Receive Date: 20210405
  Receipt Date: 20210405
  Transmission Date: 20210717
  Serious: No
  Sender: FDA-Public Use
  Company Number: US-BAUSCH-BL-2021-007449

PATIENT
  Age: 72 Year
  Sex: Female

DRUGS (1)
  1. LACRISERT [Suspect]
     Active Substance: HYDROXYPROPYL CELLULOSE
     Indication: PRODUCT USED FOR UNKNOWN INDICATION
     Dosage: 1 TIME IN BOTH EYES ONE WEEK AGO
     Route: 047
     Dates: start: 202102, end: 202102

REACTIONS (2)
  - Eye colour change [Recovered/Resolved]
  - Expired product administered [Unknown]

NARRATIVE: CASE EVENT DATE: 202102
